FAERS Safety Report 17549685 (Version 1)
Quarter: 2020Q1

REPORT INFORMATION
  Report Type: Spontaneous
  Country: US (occurrence: US)
  Receive Date: 20200317
  Receipt Date: 20200317
  Transmission Date: 20200409
  Serious: No
  Sender: FDA-Public Use
  Company Number: US-BIOGEN-2020BI00850277

PATIENT
  Sex: Female

DRUGS (1)
  1. TECFIDERA [Suspect]
     Active Substance: DIMETHYL FUMARATE
     Indication: MULTIPLE SCLEROSIS
     Route: 048

REACTIONS (6)
  - Gastrointestinal disorder [Unknown]
  - Vomiting [Unknown]
  - Abdominal discomfort [Unknown]
  - Hypersomnia [Unknown]
  - Central nervous system lesion [Unknown]
  - Feeling abnormal [Unknown]
